FAERS Safety Report 8139203-1 (Version None)
Quarter: 2012Q1

REPORT INFORMATION
  Report Type: 
  Country: None (occurrence: None)
  Receive Date: 20120215
  Receipt Date: 20120203
  Transmission Date: 20120608
  Serious: Yes (Hospitalization)
  Sender: FDA-Public Use
  Company Number: BR-MEDIMMUNE-MEDI-0013193

PATIENT
  Sex: Female
  Weight: 4.15 kg

DRUGS (9)
  1. VITAMIN AD [Concomitant]
     Dates: start: 20110301
  2. DOMPERIDONE [Concomitant]
  3. FERRIC HYDROXIDE POLYMALTOSE COMPLEX [Concomitant]
     Route: 048
     Dates: start: 20110301
  4. PREDNISOLONE SODIUM SUCCINATE INJ [Concomitant]
  5. SYNAGIS [Suspect]
     Indication: BRONCHOPULMONARY DYSPLASIA
     Route: 030
     Dates: start: 20110429, end: 20110429
  6. FERRIC HYDROXIDE POLYMALTOSE COMPLEX [Concomitant]
     Indication: VITAMIN SUPPLEMENTATION
  7. SYNAGIS [Suspect]
     Route: 030
     Dates: start: 20110627, end: 20110727
  8. CLARITHROMYCIN [Concomitant]
  9. AFRIN MOISTURIZING SALINE [Concomitant]
     Indication: NASAL DECONGESTION THERAPY
     Route: 045
     Dates: start: 20110301

REACTIONS (9)
  - PNEUMONIA [None]
  - PYREXIA [None]
  - DYSPNOEA [None]
  - SOMNOLENCE [None]
  - RHINITIS [None]
  - COUGH [None]
  - PRODUCTIVE COUGH [None]
  - FATIGUE [None]
  - LOWER RESPIRATORY TRACT INFECTION [None]
